FAERS Safety Report 5252240-X (Version None)
Quarter: 2007Q1

REPORT INFORMATION
  Report Type: 
  Country: None (occurrence: None)
  Receive Date: 20070227
  Receipt Date: 20070227
  Transmission Date: 20070707
  Serious: No
  Sender: FDA-Public Use
  Company Number: None

PATIENT
  Sex: Female
  Weight: 71.2147 kg

DRUGS (3)
  1. ROBITUSSIN COUGH + COLD [Suspect]
     Indication: COUGH
     Dosage: 2 TSP. EVERY 6 HOURS
     Dates: start: 20070224, end: 20070225
  2. ROBITUSSIN COUGH + COLD [Suspect]
     Indication: MULTIPLE ALLERGIES
     Dosage: 2 TSP. EVERY 6 HOURS
     Dates: start: 20070224, end: 20070225
  3. ROBITUSSIN COUGH + COLD [Suspect]
     Indication: NASOPHARYNGITIS
     Dosage: 2 TSP. EVERY 6 HOURS
     Dates: start: 20070224, end: 20070225

REACTIONS (2)
  - DYSURIA [None]
  - HAEMATURIA [None]
